FAERS Safety Report 6751366-9 (Version None)
Quarter: 2010Q2

REPORT INFORMATION
  Report Type: 
  Country: None (occurrence: None)
  Receive Date: 20100528
  Receipt Date: 20100518
  Transmission Date: 20101027
  Serious: Yes (Hospitalization)
  Sender: FDA-Public Use
  Company Number: 1000014089

PATIENT
  Age: 15 Year
  Sex: Female

DRUGS (2)
  1. ESCITALOPRAM [Suspect]
     Dosage: ONE BLISTER (ONCE), ORAL
     Dates: start: 20100412, end: 20100412
  2. ZOLPIDEM [Suspect]
     Dosage: ONE BLISTER (ONCE), ORAL
     Route: 048
     Dates: start: 20100412, end: 20100412

REACTIONS (3)
  - MULTIPLE DRUG OVERDOSE INTENTIONAL [None]
  - OFF LABEL USE [None]
  - SOMNOLENCE [None]
